FAERS Safety Report 9723689 (Version 1)
Quarter: 2013Q4

REPORT INFORMATION
  Report Type: Spontaneous
  Country: LT (occurrence: LT)
  Receive Date: 20131202
  Receipt Date: 20131202
  Transmission Date: 20140711
  Serious: Yes (Hospitalization)
  Sender: FDA-Public Use
  Company Number: LT-GLAXOSMITHKLINE-B0948964A

PATIENT
  Age: 13 Month
  Sex: Male

DRUGS (3)
  1. ZINNAT [Suspect]
     Indication: RESPIRATORY TRACT INFECTION
     Dosage: 100MG PER DAY
     Route: 048
     Dates: start: 20131105, end: 20131105
  2. DEXAMETHASONE [Concomitant]
     Dates: start: 20131104, end: 20131105
  3. SALBUTAMOL [Concomitant]
     Route: 065
     Dates: start: 20131102, end: 20131105

REACTIONS (3)
  - Dyspnoea [Recovered/Resolved]
  - Foaming at mouth [Recovered/Resolved]
  - Cyanosis [Recovered/Resolved]
